FAERS Safety Report 7389636-6 (Version None)
Quarter: 2011Q2

REPORT INFORMATION
  Report Type: 
  Country: None (occurrence: None)
  Receive Date: 20110401
  Receipt Date: 20110323
  Transmission Date: 20111010
  Serious: No
  Sender: FDA-Public Use
  Company Number: B0709341A

PATIENT
  Age: 8 Year

DRUGS (1)
  1. RELENZA [Suspect]
     Indication: INFLUENZA
     Dosage: 3IUAX PER DAY
     Route: 055

REACTIONS (1)
  - ACCIDENTAL OVERDOSE [None]
